FAERS Safety Report 20834626 (Version 2)
Quarter: 2022Q2

REPORT INFORMATION
  Report Type: Report from Study
  Country: IN (occurrence: IN)
  Receive Date: 20220516
  Receipt Date: 20220606
  Transmission Date: 20220721
  Serious: Yes (Other)
  Sender: FDA-Public Use
  Company Number: IN-NOVARTISPH-NVSC2022IN075998

PATIENT
  Age: 15 Year
  Sex: Female

DRUGS (4)
  1. ELTROMBOPAG OLAMINE [Suspect]
     Active Substance: ELTROMBOPAG OLAMINE
     Indication: Aplastic anaemia
     Dosage: 50 MG, QD
     Route: 065
     Dates: start: 20211007, end: 20211026
  2. ELTROMBOPAG OLAMINE [Suspect]
     Active Substance: ELTROMBOPAG OLAMINE
     Dosage: 100 MG, QD
     Route: 065
     Dates: start: 20211007, end: 20220301
  3. ELTROMBOPAG OLAMINE [Suspect]
     Active Substance: ELTROMBOPAG OLAMINE
     Dosage: 100 MG, QD
     Route: 065
     Dates: start: 20211027
  4. ELTROMBOPAG OLAMINE [Suspect]
     Active Substance: ELTROMBOPAG OLAMINE
     Dosage: 100 MG, QD
     Route: 065
     Dates: start: 20220425

REACTIONS (5)
  - Gingival bleeding [Unknown]
  - Heavy menstrual bleeding [Unknown]
  - Platelet count decreased [Unknown]
  - Abdominal pain [Unknown]
  - Product use issue [Unknown]

NARRATIVE: CASE EVENT DATE: 20211027
